FAERS Safety Report 6753886-X (Version None)
Quarter: 2010Q2

REPORT INFORMATION
  Report Type: 
  Country: None (occurrence: None)
  Receive Date: 20100603
  Receipt Date: 20100528
  Transmission Date: 20101027
  Serious: Yes (Hospitalization)
  Sender: FDA-Public Use
  Company Number: US-ASTRAZENECA-2010SE24772

PATIENT
  Age: 84 Year
  Sex: Female
  Weight: 59 kg

DRUGS (8)
  1. CRESTOR [Suspect]
     Indication: BLOOD CHOLESTEROL INCREASED
     Route: 048
     Dates: start: 20010101
  2. ZETIA [Concomitant]
  3. COLCHICINE [Concomitant]
  4. PLAVIX [Concomitant]
  5. CALCIUM LIQUID [Concomitant]
  6. EXTRA STRENGTH TYLENOL [Concomitant]
  7. VITAMIN D [Concomitant]
  8. ACETYLCYSTEINE [Concomitant]

REACTIONS (3)
  - CEREBROVASCULAR ACCIDENT [None]
  - HEAD INJURY [None]
  - LOSS OF CONSCIOUSNESS [None]
